FAERS Safety Report 7658112-5 (Version None)
Quarter: 2011Q3

REPORT INFORMATION
  Report Type: 
  Country: None (occurrence: None)
  Receive Date: 20110805
  Receipt Date: 20110722
  Transmission Date: 20111222
  Serious: Yes (Other)
  Sender: FDA-Public Use
  Company Number: US-JNJFOC-20110710799

PATIENT
  Sex: Male

DRUGS (4)
  1. REMICADE [Suspect]
     Dosage: 8 INFUSIONS  PRIOR TO ENROLLMENT
     Route: 042
  2. REMICADE [Suspect]
     Indication: CROHN'S DISEASE
     Dosage: PRIOR TO ENROLLMENT (TOTAL OF 10 INFUSIONS)
     Route: 042
     Dates: start: 20031030
  3. REMICADE [Suspect]
     Dosage: PRIOR TO ENROLLMENT
     Route: 042
     Dates: start: 20030918
  4. REMICADE [Suspect]
     Dosage: 62 INFUSIONS
     Route: 042
     Dates: start: 20031212, end: 20110627

REACTIONS (2)
  - ANAL ABSCESS [None]
  - ANAL FISTULA [None]
